FAERS Safety Report 5627842-9 (Version None)
Quarter: 2008Q1

REPORT INFORMATION
  Report Type: 
  Country: None (occurrence: None)
  Receive Date: 20080215
  Receipt Date: 20080211
  Transmission Date: 20080703
  Serious: Yes (Death)
  Sender: FDA-Public Use
  Company Number: US-GILEAD-2008-0015130

PATIENT
  Sex: Male

DRUGS (10)
  1. LETAIRIS [Suspect]
     Indication: PULMONARY HYPERTENSION
     Route: 048
     Dates: start: 20071001
  2. ASMANEX TWISTHALER [Concomitant]
     Route: 055
  3. COMBIVENT [Concomitant]
     Route: 055
  4. FORADIL [Concomitant]
     Route: 055
  5. COUMADIN [Concomitant]
  6. DIGOXIN [Concomitant]
  7. TRIAMTERENE AND HYDROCHLOROTHIAZIDE [Concomitant]
  8. ZOLOFT [Concomitant]
  9. OXYGEN [Concomitant]
  10. OXYGEN [Concomitant]

REACTIONS (2)
  - CHRONIC OBSTRUCTIVE PULMONARY DISEASE [None]
  - PNEUMONIA [None]
